FAERS Safety Report 4299072-7 (Version None)
Quarter: 2004Q1

REPORT INFORMATION
  Report Type: 
  Country: None (occurrence: None)
  Receive Date: 20040217
  Receipt Date: 20040203
  Transmission Date: 20041129
  Serious: Yes (Hospitalization)
  Sender: FDA-Public Use
  Company Number: 235193

PATIENT
  Age: 51 Year
  Sex: Female

DRUGS (5)
  1. ACTRAPID (INSULIN HUMAN) SOLUTION FOR INJECTION [Suspect]
     Indication: DIABETES MELLITUS
     Dosage: SUBCUTANEOUS
     Route: 058
     Dates: start: 20031105, end: 20031106
  2. NOVORAPID (INSULIN ASPART) SOLUTION FOR INJECTION, 100U/ML [Suspect]
     Indication: DIABETES MELLITUS
     Dosage: SUBCUTANEOUS
     Route: 058
     Dates: start: 20031101, end: 20031104
  3. INDAPAMIDE [Concomitant]
  4. ATORVASTATIN CALCIUM [Concomitant]
  5. KENZEN (CANDESARTAN CILEXETIL) [Concomitant]

REACTIONS (3)
  - ANXIETY [None]
  - HAEMOLYTIC ANAEMIA [None]
  - MALAISE [None]
